FAERS Safety Report 5721761-5 (Version None)
Quarter: 2008Q2

REPORT INFORMATION
  Report Type: 
  Country: None (occurrence: None)
  Receive Date: 20080429
  Receipt Date: 20070410
  Transmission Date: 20081010
  Serious: No
  Sender: FDA-Public Use
  Company Number: US-ASTRAZENECA-2007UW07060

PATIENT
  Age: 17 Month
  Sex: Female

DRUGS (1)
  1. NEXIUM [Suspect]
     Dosage: 4 TABLETS ONCE
     Route: 048

REACTIONS (1)
  - ACCIDENTAL DRUG INTAKE BY CHILD [None]
